FAERS Safety Report 5324278-5 (Version None)
Quarter: 2007Q2

REPORT INFORMATION
  Report Type: 
  Country: None (occurrence: None)
  Receive Date: 20070514
  Receipt Date: 20070502
  Transmission Date: 20071010
  Serious: Yes (Death, Other)
  Sender: FDA-Public Use
  Company Number: AT-SHR-AT-2006-033535

PATIENT
  Age: 79 Year

DRUGS (6)
  1. CAMPATH [Suspect]
     Indication: CHRONIC LYMPHOCYTIC LEUKAEMIA
     Dosage: 3 MG, 1 DOSE
     Dates: start: 20050202, end: 20050202
  2. CAMPATH [Suspect]
     Dosage: 10 MG, 1 DOSE
     Dates: start: 20050203, end: 20050203
  3. CAMPATH [Suspect]
     Dosage: 30 MG, 1 DOSE
     Dates: start: 20050204, end: 20050204
  4. CAMPATH [Suspect]
     Dosage: 30 MG, 3X/WEEK
     Dates: start: 20050205
  5. VALACYCLOVIR HCL [Concomitant]
     Indication: INFECTION PROPHYLAXIS
  6. SULFAMETHOXAZOLE W/TRIMETHOPRIM [Concomitant]
     Indication: INFECTION PROPHYLAXIS

REACTIONS (2)
  - KERATOACANTHOMA [None]
  - PULMONARY EMBOLISM [None]
